FAERS Safety Report 7393167-7 (Version None)
Quarter: 2011Q2

REPORT INFORMATION
  Report Type: 
  Country: None (occurrence: None)
  Receive Date: 20110404
  Receipt Date: 20110323
  Transmission Date: 20111010
  Serious: Yes (Hospitalization, Other)
  Sender: FDA-Public Use
  Company Number: GB-BRISTOL-MYERS SQUIBB COMPANY-15355282

PATIENT
  Age: 58 Year
  Sex: Male

DRUGS (6)
  1. BENDROFLUMETHIAZIDE [Concomitant]
  2. BLINDED: PLACEBO [Suspect]
     Indication: THROMBOSIS PROPHYLAXIS
     Dosage: INTERRUPTED ON 04OCT2010
     Route: 048
     Dates: start: 20091005, end: 20101004
  3. APIXABAN [Suspect]
     Indication: THROMBOSIS PROPHYLAXIS
     Dosage: INTERRUPTED ON 04OCT2010
     Route: 048
     Dates: start: 20091005, end: 20101004
  4. VERAPAMIL [Concomitant]
  5. ENALAPRIL MALEATE [Concomitant]
  6. WARFARIN SODIUM [Suspect]
     Indication: THROMBOSIS PROPHYLAXIS
     Dosage: INTERRUPTED ON 04OCT2010;4MG
     Route: 048
     Dates: start: 20091005, end: 20101004

REACTIONS (2)
  - HAEMATOMA [None]
  - SYNOVIAL RUPTURE [None]
